FAERS Safety Report 14505972 (Version 2)
Quarter: 2018Q1

REPORT INFORMATION
  Report Type: Report from Study
  Country: US (occurrence: US)
  Receive Date: 20180208
  Receipt Date: 20180308
  Transmission Date: 20180509
  Serious: Yes (Hospitalization, Other)
  Sender: FDA-Public Use
  Company Number: US-JNJFOC-20171012857

PATIENT
  Age: 82 Year
  Sex: Male

DRUGS (17)
  1. LISINOPRIL. [Concomitant]
     Active Substance: LISINOPRIL
     Dosage: DOSED DOWN
  2. TOPROL XL [Concomitant]
     Active Substance: METOPROLOL SUCCINATE
  3. ZANTAC [Concomitant]
     Active Substance: RANITIDINE HYDROCHLORIDE
  4. TUMS [Concomitant]
     Active Substance: CALCIUM CARBONATE
  5. FORTICAL [Concomitant]
     Active Substance: CALCITONIN SALMON
  6. GLYBURIDE. [Concomitant]
     Active Substance: GLYBURIDE
  7. IMBRUVICA [Suspect]
     Active Substance: IBRUTINIB
     Indication: CHRONIC LYMPHOCYTIC LEUKAEMIA
     Route: 048
     Dates: start: 20170706, end: 201710
  8. MELATONIN [Concomitant]
     Active Substance: MELATONIN
  9. CALCARB [Concomitant]
  10. FOLIC ACID. [Concomitant]
     Active Substance: FOLIC ACID
  11. IRON [Concomitant]
     Active Substance: IRON
  12. TAMSULOSIN HYDROCHLORIDE. [Concomitant]
     Active Substance: TAMSULOSIN HYDROCHLORIDE
  13. VITAMINS NOS [Concomitant]
     Active Substance: VITAMINS
  14. DIFLUCAN [Concomitant]
     Active Substance: FLUCONAZOLE
  15. CEFADROXIL. [Concomitant]
     Active Substance: CEFADROXIL
  16. MULTIVITAMINS [Concomitant]
     Active Substance: VITAMINS
  17. METFORMIN [Concomitant]
     Active Substance: METFORMIN HYDROCHLORIDE

REACTIONS (15)
  - Bleeding time prolonged [Unknown]
  - Glycosylated haemoglobin decreased [Unknown]
  - Epistaxis [Not Recovered/Not Resolved]
  - Malignant melanoma [Unknown]
  - Urinary tract infection [Not Recovered/Not Resolved]
  - Localised infection [Not Recovered/Not Resolved]
  - Platelet count increased [Unknown]
  - White blood cell count decreased [Unknown]
  - Platelet count decreased [Unknown]
  - Post procedural infection [Unknown]
  - Post procedural haemorrhage [Unknown]
  - Oedema peripheral [Unknown]
  - Surgery [Unknown]
  - Blood pressure increased [Not Recovered/Not Resolved]
  - Red blood cell count decreased [Recovering/Resolving]

NARRATIVE: CASE EVENT DATE: 20171016
